FAERS Safety Report 4687696-4 (Version None)
Quarter: 2005Q2

REPORT INFORMATION
  Report Type: 
  Country: None (occurrence: None)
  Receive Date: 20050610
  Receipt Date: 20050531
  Transmission Date: 20051028
  Serious: Yes (Other)
  Sender: FDA-Public Use
  Company Number: 200514989GDDC

PATIENT
  Age: 30 Year
  Sex: Female

DRUGS (5)
  1. FLAGYL [Suspect]
     Indication: CAESAREAN SECTION
     Route: 042
     Dates: start: 20050523, end: 20050525
  2. VELOSEF CAPSULE [Concomitant]
     Route: 042
     Dates: start: 20050523, end: 20050525
  3. DEXTROSE 5% [Concomitant]
     Route: 042
  4. KINZ [Concomitant]
     Indication: ANALGESIC EFFECT
     Route: 030
  5. VOLTAREL [Concomitant]
     Indication: ANALGESIC EFFECT
     Route: 030

REACTIONS (3)
  - CHILLS [None]
  - CYANOSIS [None]
  - PYREXIA [None]
